FAERS Safety Report 8358250-8 (Version None)
Quarter: 2012Q2

REPORT INFORMATION
  Report Type: 
  Country: None (occurrence: None)
  Receive Date: 20120514
  Receipt Date: 20120511
  Transmission Date: 20120825
  Serious: Yes (Other)
  Sender: FDA-Public Use
  Company Number: DE-GLAXOSMITHKLINE-D0075574A

PATIENT
  Age: 35 Year
  Sex: Male

DRUGS (1)
  1. VIANI FORTE [Suspect]
     Route: 055
     Dates: start: 20050101

REACTIONS (2)
  - OSTEOPOROSIS [None]
  - DIABETES MELLITUS [None]
